FAERS Safety Report 4618773-1 (Version None)
Quarter: 2005Q1

REPORT INFORMATION
  Report Type: 
  Country: None (occurrence: None)
  Receive Date: 20050323
  Receipt Date: 20050314
  Transmission Date: 20050727
  Serious: Yes (Disabling, Other)
  Sender: FDA-Public Use
  Company Number: 2005045454

PATIENT
  Sex: Female
  Weight: 61.2356 kg

DRUGS (3)
  1. ZITHROMAX [Suspect]
     Indication: RESPIRATORY TRACT INFECTION
     Dosage: 500 MG (250 MG, 1 IN 1 D), ORAL
     Route: 048
     Dates: start: 20020530, end: 20020530
  2. ERYTHROMYCIN [Suspect]
     Indication: ILL-DEFINED DISORDER
  3. ALL OTHER THERAPEUTIC PRODUCTS (ALL OTHER THERAPEUTIC PRODUCTS) [Concomitant]

REACTIONS (5)
  - BREAST CANCER [None]
  - DIARRHOEA [None]
  - NON-HODGKIN'S LYMPHOMA [None]
  - RESPIRATORY TRACT INFECTION [None]
  - SINUSITIS [None]
